FAERS Safety Report 7361938-9 (Version None)
Quarter: 2011Q1

REPORT INFORMATION
  Report Type: 
  Country: None (occurrence: None)
  Receive Date: 20110318
  Receipt Date: 20110316
  Transmission Date: 20110831
  Serious: Yes (Disabling)
  Sender: FDA-Public Use
  Company Number: US-PFIZER INC-2011058343

PATIENT
  Sex: Male
  Weight: 81.6 kg

DRUGS (2)
  1. BYETTA [Concomitant]
     Indication: DIABETES MELLITUS
     Dosage: UNK
  2. TIKOSYN [Suspect]
     Indication: HEART RATE IRREGULAR
     Dosage: 0.25 MG, 2X/DAY
     Route: 048
     Dates: start: 20050101

REACTIONS (1)
  - RENAL IMPAIRMENT [None]
